FAERS Safety Report 5076523-1 (Version None)
Quarter: 2006Q3

REPORT INFORMATION
  Report Type: 
  Country: None (occurrence: None)
  Receive Date: 20060725
  Receipt Date: 20060317
  Transmission Date: 20061208
  Serious: No
  Sender: FDA-Public Use
  Company Number: 200611765BWH

PATIENT
  Age: 73 Year
  Sex: Female

DRUGS (1)
  1. NEXAVAR [Suspect]
     Indication: RENAL NEOPLASM
     Dosage: 400 MG, BID, ORAL
     Route: 048
     Dates: start: 20060303, end: 20060317

REACTIONS (3)
  - BLISTER [None]
  - FLUID RETENTION [None]
  - OEDEMA PERIPHERAL [None]
